FAERS Safety Report 16454096 (Version 1)
Quarter: 2019Q2

REPORT INFORMATION
  Report Type: Spontaneous
  Country: ES (occurrence: ES)
  Receive Date: 20190620
  Receipt Date: 20190620
  Transmission Date: 20190711
  Serious: Yes (Hospitalization, Other)
  Sender: FDA-Public Use
  Company Number: ES-009507513-1906ESP005410

PATIENT
  Age: 44 Year
  Sex: Male

DRUGS (2)
  1. MONTELUKAST SODIUM. [Suspect]
     Active Substance: MONTELUKAST SODIUM
     Indication: BRONCHIECTASIS
     Route: 048
  2. MONTELUKAST SODIUM. [Suspect]
     Active Substance: MONTELUKAST SODIUM
     Indication: PNEUMONIA

REACTIONS (11)
  - Bronchiectasis [Unknown]
  - Oedema peripheral [Unknown]
  - Scoliosis [Unknown]
  - Product use in unapproved indication [Unknown]
  - Vomiting [Unknown]
  - Mouth haemorrhage [Unknown]
  - Liver disorder [Unknown]
  - Nausea [Unknown]
  - Haemoptysis [Unknown]
  - Pulmonary hypertension [Unknown]
  - Tricuspid valve incompetence [Unknown]

NARRATIVE: CASE EVENT DATE: 2018
